FAERS Safety Report 8930733 (Version 1)
Quarter: 2012Q4

REPORT INFORMATION
  Report Type: 
  Country: US (occurrence: US)
  Receive Date: 20121128
  Receipt Date: 20121128
  Transmission Date: 20130627
  Serious: Yes (Disabling, Other)
  Sender: FDA-Public Use
  Company Number: US-MERCK-1211USA008155

PATIENT

DRUGS (2)
  1. FOSAMAX [Suspect]
     Indication: OSTEOPENIA
     Dosage: UNK
     Route: 048
     Dates: start: 2001, end: 2008
  2. FOSAMAX [Suspect]
     Indication: OSTEOPOROSIS

REACTIONS (5)
  - Femur fracture [Unknown]
  - Femur fracture [Unknown]
  - Low turnover osteopathy [Unknown]
  - Multiple fractures [Unknown]
  - Osteoporosis [Unknown]
